FAERS Safety Report 5124193-6 (Version None)
Quarter: 2006Q4

REPORT INFORMATION
  Report Type: 
  Country: None (occurrence: None)
  Receive Date: 20061010
  Receipt Date: 20060803
  Transmission Date: 20070319
  Serious: No
  Sender: FDA-Public Use
  Company Number: US-BRISTOL-MYERS SQUIBB COMPANY-13464920

PATIENT
  Age: 65 Year
  Sex: Female

DRUGS (1)
  1. AVAPRO [Suspect]
     Dates: end: 20060709

REACTIONS (1)
  - NASOPHARYNGITIS [None]
